FAERS Safety Report 11642384 (Version 1)
Quarter: 2015Q4

REPORT INFORMATION
  Report Type: Spontaneous
  Country: IT (occurrence: IT)
  Receive Date: 20151019
  Receipt Date: 20151019
  Transmission Date: 20160304
  Serious: Yes (Hospitalization)
  Sender: FDA-Public Use
  Company Number: IT-ASTRAZENECA-2015SE99089

PATIENT
  Age: 29847 Day
  Sex: Male

DRUGS (10)
  1. OMNIC (TAMSULOSIN) [Concomitant]
     Route: 048
  2. TRIATEC (RAMIPRIL) [Concomitant]
     Active Substance: RAMIPRIL
     Route: 048
  3. ASA [Concomitant]
     Active Substance: ASPIRIN
     Route: 048
  4. LEVOXACIN [Concomitant]
     Active Substance: LEVOFLOXACIN
  5. LASIX [Concomitant]
     Active Substance: FUROSEMIDE
     Route: 048
  6. SEROQUEL [Suspect]
     Active Substance: QUETIAPINE FUMARATE
     Indication: PRODUCT USED FOR UNKNOWN INDICATION
     Route: 048
     Dates: start: 20150702, end: 20150702
  7. AVODART (DUTASTERIDE) [Concomitant]
     Route: 048
  8. EUTIROX (LEVOTHYROXINE) [Concomitant]
     Route: 048
  9. LANSOX [Concomitant]
     Active Substance: LANSOPRAZOLE
  10. SODIUM CHLORIDE. [Concomitant]
     Active Substance: SODIUM CHLORIDE

REACTIONS (2)
  - Urosepsis [Unknown]
  - Sedation [Unknown]

NARRATIVE: CASE EVENT DATE: 20150702
